FAERS Safety Report 18641028 (Version 1)
Quarter: 2020Q4

REPORT INFORMATION
  Report Type: Spontaneous
  Country: US (occurrence: US)
  Receive Date: 20201221
  Receipt Date: 20201221
  Transmission Date: 20210114
  Serious: No
  Sender: FDA-Public Use
  Company Number: US-CELLTRION INC.-2020US028482

PATIENT

DRUGS (8)
  1. ALLOPURINOL. [Concomitant]
     Active Substance: ALLOPURINOL
     Dosage: 300 MG
  2. TRUXIMA [Suspect]
     Active Substance: RITUXIMAB-ABBS
     Dosage: 375 MG, FREQUENCY: 21 DAYS
     Route: 042
     Dates: start: 20200824, end: 20200824
  3. FLUCONAZOLE. [Concomitant]
     Active Substance: FLUCONAZOLE
     Dosage: 200 MG
  4. ACYCLOVIR [ACICLOVIR] [Concomitant]
     Active Substance: ACYCLOVIR
     Dosage: 400 MG
  5. TRUXIMA [Suspect]
     Active Substance: RITUXIMAB-ABBS
     Indication: BURKITT^S LYMPHOMA
     Dosage: 375 MG, FREQUENCY: 21 DAYS
     Route: 042
     Dates: start: 20200727, end: 20200727
  6. PROCHLORPERAZINE MALEATE. [Concomitant]
     Active Substance: PROCHLORPERAZINE MALEATE
     Dosage: 10 MG
  7. ONDANSETRON [Concomitant]
     Active Substance: ONDANSETRON
     Dosage: 08 MG
  8. METRONIDAZOLE. [Concomitant]
     Active Substance: METRONIDAZOLE
     Dosage: 500 MG

REACTIONS (1)
  - Off label use [Unknown]
